FAERS Safety Report 15961497 (Version 2)
Quarter: 2019Q1

REPORT INFORMATION
  Report Type: Spontaneous
  Country: PL (occurrence: PL)
  Receive Date: 20190214
  Receipt Date: 20190301
  Transmission Date: 20190417
  Serious: Yes (Other)
  Sender: FDA-Public Use
  Company Number: PL-009507513-1902POL000977

PATIENT
  Age: 70 Year
  Sex: Female

DRUGS (13)
  1. CARBIDOPA (+) LEVODOPA [Suspect]
     Active Substance: CARBIDOPA\LEVODOPA
     Indication: PARKINSON^S DISEASE
     Dosage: 100/25 MG 4 TIMES A DAY AT 7.00 AM, 11.00 AM, 3.00 PM AND 7.00 PM
     Route: 065
  2. ROPINIROLE. [Suspect]
     Active Substance: ROPINIROLE
     Indication: PARKINSON^S DISEASE
     Dosage: 8 MG ONES DAILY (AT THE MORNING), THEN THE DOSE REDUCED BY 2 MG
  3. RIVASTIGMINE. [Interacting]
     Active Substance: RIVASTIGMINE
     Route: 065
  4. CLOZAPINE. [Interacting]
     Active Substance: CLOZAPINE
     Indication: HALLUCINATIONS, MIXED
     Route: 065
  5. HYDROXYZINE HYDROCHLORIDE. [Interacting]
     Active Substance: HYDROXYZINE HYDROCHLORIDE
     Indication: ANXIETY DISORDER
     Dosage: 25 MG AD HOC ADMINISTERED DUE TO ANXIETY DISORDERS
  6. AMOXICILLIN. [Concomitant]
     Active Substance: AMOXICILLIN
     Indication: PNEUMONIA
  7. BIPERIDEN [Interacting]
     Active Substance: BIPERIDEN
     Indication: PARKINSON^S DISEASE
     Dosage: 2 MG, 2X/DAY (BID)
  8. ROPINIROLE. [Suspect]
     Active Substance: ROPINIROLE
     Dosage: DOSE REDUCED BY 2 MG
  9. AMITRIPTYLINE HYDROCHLORIDE. [Interacting]
     Active Substance: AMITRIPTYLINE HYDROCHLORIDE
     Indication: SLEEP DISORDER
     Dosage: 25 MILLIGRAM, ONCE DAILY (QD)
     Route: 065
  10. RASAGILINE. [Interacting]
     Active Substance: RASAGILINE
     Indication: PARKINSON^S DISEASE
     Dosage: 1 MG AT THE MORNING
     Route: 065
  11. OXYBUTYNIN. [Interacting]
     Active Substance: OXYBUTYNIN CHLORIDE
     Indication: URINARY INCONTINENCE
     Dosage: 5 MG, 3X/DAY (TID)
  12. AMANTADINE. [Interacting]
     Active Substance: AMANTADINE HYDROCHLORIDE
     Indication: PARKINSON^S DISEASE
     Dosage: 100 MG TWICE DAILY (AT MORNING AND AT NOON)
  13. AMITRIPTYLINE HYDROCHLORIDE. [Interacting]
     Active Substance: AMITRIPTYLINE HYDROCHLORIDE
     Indication: DEPRESSION

REACTIONS (11)
  - Hallucinations, mixed [Recovered/Resolved]
  - Cerebral atrophy [Unknown]
  - Neutrophil count increased [Unknown]
  - C-reactive protein increased [Unknown]
  - Anxiety [Unknown]
  - Parkinson^s disease [Unknown]
  - Labelled drug-drug interaction medication error [Unknown]
  - White blood cell count increased [Unknown]
  - Mental impairment [Unknown]
  - Pneumonia [Unknown]
  - Psychotic symptom [Unknown]
